FAERS Safety Report 6120843-6 (Version None)
Quarter: 2009Q1

REPORT INFORMATION
  Report Type: 
  Country: None (occurrence: None)
  Receive Date: 20090317
  Receipt Date: 20090309
  Transmission Date: 20090719
  Serious: Yes (Death, Other)
  Sender: FDA-Public Use
  Company Number: TH-ROCHE-619973

PATIENT
  Age: 69 Year
  Sex: Female

DRUGS (2)
  1. CEFTRIAXONE SODIUM [Suspect]
     Route: 042
  2. IMIPENEM [Suspect]
     Route: 065

REACTIONS (2)
  - DEATH [None]
  - PNEUMONIA [None]
